FAERS Safety Report 8356213-X (Version None)
Quarter: 2012Q2

REPORT INFORMATION
  Report Type: 
  Country: None (occurrence: None)
  Receive Date: 20120514
  Receipt Date: 20120504
  Transmission Date: 20120825
  Serious: Yes (Other)
  Sender: FDA-Public Use
  Company Number: US-US-EMD SERONO, INC.-7130963

PATIENT
  Sex: Male

DRUGS (2)
  1. REBIF [Suspect]
     Route: 058
     Dates: start: 20120329
  2. REBIF [Suspect]
     Indication: PRODUCT USED FOR UNKNOWN INDICATION

REACTIONS (2)
  - URINARY TRACT INFECTION [None]
  - DIZZINESS [None]
